FAERS Safety Report 9044301 (Version 3)
Quarter: 2014Q1

REPORT INFORMATION
  Report Type: Spontaneous
  Country: US (occurrence: US)
  Receive Date: 20130131
  Receipt Date: 20140325
  Transmission Date: 20141002
  Serious: Yes (Hospitalization, Other)
  Sender: FDA-Public Use
  Company Number: US-BIOGENIDEC-2013BI008131

PATIENT
  Sex: Female

DRUGS (5)
  1. AVONEX [Suspect]
     Indication: MULTIPLE SCLEROSIS
     Route: 030
     Dates: start: 19991001, end: 200109
  2. AVONEX [Suspect]
     Indication: MULTIPLE SCLEROSIS
     Route: 030
     Dates: start: 20021001, end: 2005
  3. AVONEX [Suspect]
     Indication: MULTIPLE SCLEROSIS
     Route: 030
     Dates: start: 2005
  4. CLARITIN [Concomitant]
     Indication: ALLERGIC SINUSITIS
  5. DEPAKOTE [Concomitant]
     Indication: MIGRAINE

REACTIONS (3)
  - Pre-eclampsia [Recovered/Resolved]
  - Placental insufficiency [Recovered/Resolved]
  - Weight increased [Recovered/Resolved]
